FAERS Safety Report 10420069 (Version 1)
Quarter: 2014Q3

REPORT INFORMATION
  Report Type: Spontaneous
  Country: FR (occurrence: None)
  Receive Date: 20140828
  Receipt Date: 20140828
  Transmission Date: 20150326
  Serious: Yes (Hospitalization, Other)
  Sender: FDA-Public Use
  Company Number: AUR-APL-2014-09079

PATIENT
  Age: 68 Year
  Sex: Female

DRUGS (8)
  1. RAMIPRIL (RAMIPRIL) UNKNOWN, UNKNOWN [Suspect]
     Active Substance: RAMIPRIL
     Indication: ACUTE CORONARY SYNDROME
     Route: 048
     Dates: start: 201404, end: 20140507
  2. LASILIX [Suspect]
     Active Substance: FUROSEMIDE
     Indication: ACUTE CORONARY SYNDROME
     Dosage: 40 MG, TWO TIMES A DAY, ORAL ?
     Route: 048
     Dates: start: 201404, end: 20140507
  3. PANTOPRAZOLE (PANTOPRAZOLE) UNKNOWN, UNKNOWN? [Concomitant]
  4. KARDEGIC (ACETYLSALICYLATE LYSINE) UNKNOWN, UNKNOWN [Concomitant]
  5. ATORVASTATIN (ATORVASTATIN) UNKNOWN, UNKNOWN [Concomitant]
  6. LEVOTHYROX (LEVTHYROXINE SODIUM) UNKNOWN, UNKNOWN [Concomitant]
  7. ATENOLOL (ATENOLOL) UNKNOWN, UNKNOWN [Concomitant]
  8. PLAVIX (CLOPIDOGREL BISULFATE) UNKNOWN, UNKNOWN [Concomitant]

REACTIONS (3)
  - Oropharyngeal pain [None]
  - Agranulocytosis [None]
  - Pyrexia [None]

NARRATIVE: CASE EVENT DATE: 201405
